FAERS Safety Report 9911185 (Version 2)
Quarter: 2014Q1

REPORT INFORMATION
  Report Type: Spontaneous
  Country: US (occurrence: US)
  Receive Date: 20140219
  Receipt Date: 20140305
  Transmission Date: 20141002
  Serious: Yes (Other)
  Sender: FDA-Public Use
  Company Number: US-BRISTOL-MYERS SQUIBB COMPANY-20160990

PATIENT
  Age: 84 Year
  Sex: Female
  Weight: 79 kg

DRUGS (8)
  1. ELIQUIS [Suspect]
     Dates: start: 20131223, end: 20140116
  2. BUDESONIDE [Concomitant]
  3. CITALOPRAM [Concomitant]
  4. SPIRIVA [Concomitant]
  5. LASIX [Concomitant]
  6. LISINOPRIL [Concomitant]
  7. CRESTOR [Concomitant]
  8. SOTALOL [Concomitant]

REACTIONS (2)
  - Colitis [Unknown]
  - Rectal haemorrhage [Recovered/Resolved]
